FAERS Safety Report 9427236 (Version 1)
Quarter: 2013Q3

REPORT INFORMATION
  Report Type: Spontaneous
  Country: US (occurrence: None)
  Receive Date: 20130729
  Receipt Date: 20130729
  Transmission Date: 20140515
  Serious: No
  Sender: FDA-Public Use
  Company Number: None

PATIENT
  Age: 88 Year
  Sex: Female
  Weight: 50.8 kg

DRUGS (2)
  1. BUDESONIDE [Suspect]
     Indication: COUGH
     Dosage: 0.5MG/2ML?BREATHE IN USING NEBULIZER UNTIL GONE?TWICE DAILY?INHALE BY NEBULIZER
     Dates: start: 20130622, end: 20130626
  2. BEOVANA INHALTIAON SOLUTION 15 MCG/2ML [Concomitant]

REACTIONS (3)
  - Oral mucosal blistering [None]
  - Lip blister [None]
  - Pain [None]
